FAERS Safety Report 25491057 (Version 1)
Quarter: 2025Q2

REPORT INFORMATION
  Report Type: Spontaneous
  Country: US (occurrence: US)
  Receive Date: 20250629
  Receipt Date: 20250629
  Transmission Date: 20250716
  Serious: No
  Sender: SANOFI AVENTIS
  Company Number: US-SA-2025SA182379

PATIENT
  Age: 27 Year
  Sex: Female

DRUGS (1)
  1. XENPOZYME [Suspect]
     Active Substance: OLIPUDASE ALFA-RPCP
     Dosage: 191 MG, QOW
     Route: 042

REACTIONS (1)
  - Infusion site urticaria [Recovered/Resolved]
